FAERS Safety Report 11701585 (Version 3)
Quarter: 2017Q2

REPORT INFORMATION
  Report Type: Report from Study
  Country: JP (occurrence: JP)
  Receive Date: 20151105
  Receipt Date: 20170502
  Transmission Date: 20170829
  Serious: No
  Sender: FDA-Public Use
  Company Number: JP-AEGERION PHARMACEUTICAL INC.-AEGR001588

PATIENT

DRUGS (3)
  1. METRELEPTIN SHIONOGI [Suspect]
     Active Substance: METRELEPTIN
     Indication: PRODUCT USED FOR UNKNOWN INDICATION
     Dosage: 2.7 MG, QD
     Route: 058
  2. METRELEPTIN SHIONOGI [Suspect]
     Active Substance: METRELEPTIN
     Dosage: 2.7 MG, QD
     Route: 058
  3. METRELEPTIN SHIONOGI [Suspect]
     Active Substance: METRELEPTIN
     Dosage: 3 MG, UNK
     Route: 058

REACTIONS (11)
  - Glucose tolerance decreased [Not Recovered/Not Resolved]
  - Bronchitis [Recovered/Resolved]
  - Irritable bowel syndrome [Recovered/Resolved]
  - Rhinitis [Recovered/Resolved]
  - Hepatic function abnormal [Recovering/Resolving]
  - Upper respiratory tract inflammation [Recovered/Resolved]
  - Rhinitis [Recovering/Resolving]
  - Menstruation irregular [Not Recovered/Not Resolved]
  - Constipation [Not Recovered/Not Resolved]
  - Upper respiratory tract infection [Recovered/Resolved]
  - Hepatic function abnormal [Not Recovered/Not Resolved]
